FAERS Safety Report 5469648-X (Version None)
Quarter: 2007Q3

REPORT INFORMATION
  Report Type: 
  Country: None (occurrence: None)
  Receive Date: 20070927
  Receipt Date: 20070925
  Transmission Date: 20080115
  Serious: Yes (Other)
  Sender: FDA-Public Use
  Company Number: HQWYE299825SEP07

PATIENT
  Age: 43 Year
  Sex: Female

DRUGS (3)
  1. PROPRANOLOL HYDROCHLORIDE [Suspect]
     Indication: MIGRAINE PROPHYLAXIS
     Route: 048
     Dates: end: 20030101
  2. PROPRANOLOL HYDROCHLORIDE [Interacting]
     Indication: HYPERTENSION
  3. APRACUR [Interacting]
     Indication: INFLUENZA
     Dosage: 1 MG/50 MG/100 MG (FREQUENCY UNSPECIFIED)
     Route: 048
     Dates: start: 20030101, end: 20030101

REACTIONS (2)
  - DRUG INTERACTION [None]
  - DYSPNOEA [None]
